FAERS Safety Report 9013703 (Version 1)
Quarter: 2013Q1

REPORT INFORMATION
  Report Type: Spontaneous
  Country: US (occurrence: None)
  Receive Date: 20130108
  Receipt Date: 20130108
  Transmission Date: 20140127
  Serious: Yes (Hospitalization)
  Sender: FDA-Public Use
  Company Number: None

PATIENT
  Age: 66 Year
  Sex: Male
  Weight: 89.54 kg

DRUGS (1)
  1. DECITABINE [Suspect]
     Indication: MYELODYSPLASTIC SYNDROME
     Dosage: .2MG / KG SUB-Q 2X/WK
     Route: 058

REACTIONS (5)
  - Oropharyngeal pain [None]
  - Oral pain [None]
  - Cough [None]
  - Pyrexia [None]
  - Haemoglobin decreased [None]
